FAERS Safety Report 9314454 (Version 2)
Quarter: 2013Q2

REPORT INFORMATION
  Report Type: Spontaneous
  Country: US (occurrence: US)
  Receive Date: 20130529
  Receipt Date: 20130610
  Transmission Date: 20140414
  Serious: No
  Sender: FDA-Public Use
  Company Number: US-PFIZER INC-2013161039

PATIENT
  Sex: Female

DRUGS (1)
  1. LYRICA [Suspect]
     Indication: PAIN
     Dosage: 200 MG, UNK

REACTIONS (4)
  - Poor quality drug administered [Unknown]
  - Capsule physical issue [Unknown]
  - Drug effect decreased [Unknown]
  - Somnolence [Unknown]
